FAERS Safety Report 8196589-X (Version None)
Quarter: 2012Q1

REPORT INFORMATION
  Report Type: 
  Country: None (occurrence: None)
  Receive Date: 20120307
  Receipt Date: 20120221
  Transmission Date: 20120608
  Serious: Yes (Hospitalization, Other)
  Sender: FDA-Public Use
  Company Number: IMP_05743_2012

PATIENT
  Age: 62 Year
  Sex: Male

DRUGS (1)
  1. METFORMIN HYDROCHLORIDE [Suspect]
     Indication: PRODUCT USED FOR UNKNOWN INDICATION
     Dosage: 1000 MG BID, DF

REACTIONS (10)
  - HYPOTHERMIA [None]
  - LACTIC ACIDOSIS [None]
  - HYPERTENSION [None]
  - NAUSEA [None]
  - ABDOMINAL TENDERNESS [None]
  - HEART RATE INCREASED [None]
  - EMOTIONAL DISTRESS [None]
  - HYPOGLYCAEMIA [None]
  - METABOLIC ACIDOSIS [None]
  - HAEMODIALYSIS [None]
